FAERS Safety Report 4522856-4 (Version None)
Quarter: 2004Q4

REPORT INFORMATION
  Report Type: 
  Country: None (occurrence: None)
  Receive Date: 20041207
  Receipt Date: 20041124
  Transmission Date: 20050328
  Serious: Yes (Other)
  Sender: FDA-Public Use
  Company Number: 805#1#2004-00033

PATIENT
  Age: 12 Day
  Sex: Female

DRUGS (3)
  1. PROSTANDIN-I.V. (ALPROSTADIL (PAOD)) [Suspect]
     Indication: PULMONARY VALVE STENOSIS
     Dosage: 43.3 MCG INTRAVENOUS DRIP
     Route: 041
     Dates: start: 20040819, end: 20040820
  2. BECLOMETHASONE DIPROPIONATE [Concomitant]
  3. AMPHOTERICIN B [Concomitant]

REACTIONS (1)
  - HAEMOLYTIC ANAEMIA [None]
